FAERS Safety Report 9296715 (Version 3)
Quarter: 2013Q3

REPORT INFORMATION
  Report Type: Report from Study
  Country: BR (occurrence: BR)
  Receive Date: 20130517
  Receipt Date: 20130906
  Transmission Date: 20140515
  Serious: Yes (Hospitalization, Other)
  Sender: FDA-Public Use
  Company Number: PHHY2013BR034955

PATIENT
  Age: 86 Year
  Sex: Male

DRUGS (11)
  1. EXELON PATCH [Suspect]
     Indication: SENILE DEMENTIA
     Dosage: 9.5 MG (PATCH 10 CM2), DAILY
     Route: 062
  2. PROLOPA [Concomitant]
     Indication: PARKINSON^S DISEASE
     Dosage: 5 DF, DAILY
     Route: 048
  3. CITALOPRAM [Concomitant]
     Indication: PARKINSON^S DISEASE
     Dosage: 1 DF, DAILY
     Route: 048
  4. CITALOPRAM [Concomitant]
     Indication: DEPRESSION
  5. PANTOPRAZOLE [Concomitant]
     Indication: PROPHYLAXIS AGAINST GASTROINTESTINAL ULCER
     Dosage: 1 DF, DAILY
     Route: 048
  6. AAS [Concomitant]
     Indication: CARDIAC DISORDER
     Dosage: 1 DF, DAILY
     Route: 048
  7. ROSUVASTATIN [Concomitant]
     Indication: CARDIAC DISORDER
     Dosage: 1 DF, DAILY
     Route: 048
  8. ASCORBIC ACID [Concomitant]
     Indication: TEMPERATURE REGULATION DISORDER
     Dosage: 1 DF, DAILY
  9. QUETIAPINE [Concomitant]
     Indication: SENILE DEMENTIA
     Dosage: UNK UKN, UNK
  10. UNOPROST [Concomitant]
     Indication: PROSTATOMEGALY
     Dosage: 1 DF, DAILY
     Route: 048
  11. DIPYRONE [Concomitant]
     Indication: PAIN
     Dosage: UNK UKN, UNK
     Route: 048

REACTIONS (7)
  - Renal failure [Recovered/Resolved]
  - Urinary tract infection [Recovered/Resolved]
  - Pneumonia [Recovered/Resolved]
  - Suicidal ideation [Not Recovered/Not Resolved]
  - Confusional state [Not Recovered/Not Resolved]
  - Memory impairment [Not Recovered/Not Resolved]
  - Agitation [Not Recovered/Not Resolved]
